FAERS Safety Report 7804898-6 (Version None)
Quarter: 2011Q4

REPORT INFORMATION
  Report Type: 
  Country: None (occurrence: None)
  Receive Date: 20111010
  Receipt Date: 20110929
  Transmission Date: 20120403
  Serious: Yes (Hospitalization)
  Sender: FDA-Public Use
  Company Number: GB-BRISTOL-MYERS SQUIBB COMPANY-16138901

PATIENT
  Age: 56 Year
  Sex: Female

DRUGS (4)
  1. TICE BCG [Suspect]
     Route: 065
  2. BLINDED: PLACEBO [Suspect]
     Indication: BLADDER TRANSITIONAL CELL CARCINOMA
  3. MITOMYCIN [Suspect]
     Route: 065
     Dates: start: 20100201, end: 20110902
  4. CELECOXIB [Suspect]
     Indication: BLADDER TRANSITIONAL CELL CARCINOMA
     Route: 065

REACTIONS (2)
  - SUPRAPUBIC PAIN [None]
  - CHEMICAL CYSTITIS [None]
